FAERS Safety Report 8575181-9 (Version None)
Quarter: 2012Q3

REPORT INFORMATION
  Report Type: 
  Country: None (occurrence: None)
  Receive Date: 20120807
  Receipt Date: 20120725
  Transmission Date: 20120928
  Serious: No
  Sender: FDA-Public Use
  Company Number: US-ELI_LILLY_AND_COMPANY-US201206006668

PATIENT
  Age: 70 Year
  Sex: Male

DRUGS (3)
  1. HUMALOG [Suspect]
     Indication: DIABETES MELLITUS
     Dosage: 30 U, TID
  2. HUMALOG [Suspect]
     Dosage: 30 U, TID
  3. CYMBALTA [Suspect]
     Indication: DIABETIC NEUROPATHY
     Dosage: 60 MG, QD

REACTIONS (10)
  - SENSORY LOSS [None]
  - DRUG DOSE OMISSION [None]
  - DEPRESSION [None]
  - HYPOAESTHESIA [None]
  - EATING DISORDER [None]
  - WEDGE RESECTION TOENAIL [None]
  - NIGHTMARE [None]
  - INSOMNIA [None]
  - ANGER [None]
  - INTENTIONAL DRUG MISUSE [None]
